FAERS Safety Report 9254220 (Version 1)
Quarter: 2013Q2

REPORT INFORMATION
  Report Type: Report from Study
  Country: FR (occurrence: FR)
  Receive Date: 20130425
  Receipt Date: 20130425
  Transmission Date: 20140414
  Serious: Yes (Other)
  Sender: FDA-Public Use
  Company Number: PHHY2013FR037363

PATIENT
  Age: 70 Year
  Sex: Female

DRUGS (7)
  1. PANTOPRAZOLE [Concomitant]
     Dosage: UNK
     Dates: start: 2011
  2. PANTOPRAZOLE [Concomitant]
     Dosage: UNK
     Dates: start: 201105, end: 2012
  3. ADROVANCE [Concomitant]
     Dosage: 70 MG/5600 UI
     Dates: start: 201210
  4. UVEDOSE [Concomitant]
     Indication: OSTEOPOROSIS
     Dosage: 100000 IU (1DF EVERY TWO MONTHS), UNK
  5. ACLASTA/ZOLEDRONATE [Suspect]
     Indication: OSTEOPOROTIC FRACTURE
     Dosage: UNK
     Route: 042
     Dates: start: 20110504
  6. KETUM [Concomitant]
     Dosage: UNK
     Dates: start: 2011
  7. KETUM [Concomitant]
     Dosage: UNK
     Dates: start: 201104, end: 2012

REACTIONS (4)
  - Chondrocalcinosis [Recovered/Resolved]
  - Arthralgia [Recovered/Resolved]
  - Joint swelling [Recovered/Resolved]
  - Inflammation [Unknown]
